FAERS Safety Report 16141068 (Version 3)
Quarter: 2019Q2

REPORT INFORMATION
  Report Type: Spontaneous
  Country: US (occurrence: US)
  Receive Date: 20190401
  Receipt Date: 20190528
  Transmission Date: 20190711
  Serious: No
  Sender: FDA-Public Use
  Company Number: US-PFIZER INC-2019132105

PATIENT
  Age: 65 Year
  Sex: Female

DRUGS (1)
  1. XELJANZ XR [Suspect]
     Active Substance: TOFACITINIB CITRATE
     Dosage: 11 MG, UNK
     Dates: start: 201902

REACTIONS (7)
  - Arthralgia [Unknown]
  - Chondropathy [Unknown]
  - Nasal disorder [Unknown]
  - Sinus disorder [Unknown]
  - Cough [Unknown]
  - Weight increased [Unknown]
  - Diarrhoea [Unknown]
